FAERS Safety Report 11930630 (Version 1)
Quarter: 2016Q1

REPORT INFORMATION
  Report Type: Spontaneous
  Country: US (occurrence: None)
  Receive Date: 20160120
  Receipt Date: 20160120
  Transmission Date: 20160526
  Serious: Yes (Hospitalization)
  Sender: FDA-Public Use
  Company Number: None

PATIENT
  Age: 66 Year
  Sex: Male
  Weight: 77 kg

DRUGS (1)
  1. TOPIRAMATE. [Suspect]
     Active Substance: TOPIRAMATE
     Indication: PAIN
     Route: 048
     Dates: start: 20141103, end: 20150314

REACTIONS (4)
  - Night sweats [None]
  - Hepatitis [None]
  - Pain [None]
  - Oral candidiasis [None]

NARRATIVE: CASE EVENT DATE: 20150316
